FAERS Safety Report 5947661-3 (Version None)
Quarter: 2008Q4

REPORT INFORMATION
  Report Type: 
  Country: None (occurrence: None)
  Receive Date: 20081105
  Receipt Date: 20081024
  Transmission Date: 20090506
  Serious: Yes (Hospitalization)
  Sender: FDA-Public Use
  Company Number: 493802

PATIENT
  Age: 70 Year
  Sex: Male

DRUGS (9)
  1. TORSEMIDE [Suspect]
     Indication: DRUG USE FOR UNKNOWN INDICATION
     Dosage: 5 MG DAILY
     Dates: start: 20060515
  2. CARVEDILOL [Suspect]
     Indication: CARDIAC FAILURE CONGESTIVE
     Dosage: 6.5 MG DAILY
     Dates: start: 20060515
  3. SPIRONOLACTONE [Suspect]
     Indication: DRUG USE FOR UNKNOWN INDICATION
     Dosage: 12.5 MG DAILY
     Dates: start: 20061026
  4. BIVALIRUDIN (BIVALIRUDIN) [Suspect]
     Indication: MYOCARDIAL INFARCTION
     Dosage: 67.5 MG 1 PER ONE DOSE INTRAVENOUS
     Route: 042
     Dates: start: 20060515, end: 20060517
  5. RAMIPRIL [Suspect]
     Indication: DRUG USE FOR UNKNOWN INDICATION
     Dosage: 1.25 MG DAILY
     Dates: start: 20061026
  6. SIMVASTATIN [Concomitant]
  7. INSULIN (INSULIN) [Concomitant]
  8. ASPIRIN [Concomitant]
  9. CLOPIDOREL (CLOPIDOREL BISULFATE) [Concomitant]

REACTIONS (5)
  - ACUTE MYOCARDIAL INFARCTION [None]
  - AKINESIA [None]
  - CARDIOGENIC SHOCK [None]
  - HYPOTONIA [None]
  - LEFT VENTRICULAR DYSFUNCTION [None]
